FAERS Safety Report 14697538 (Version 1)
Quarter: 2018Q1

REPORT INFORMATION
  Report Type: Spontaneous
  Country: US (occurrence: US)
  Receive Date: 20180330
  Receipt Date: 20180330
  Transmission Date: 20180509
  Serious: No
  Sender: FDA-Public Use
  Company Number: US-SA-2017SA197894

PATIENT
  Age: 13 Year
  Sex: Male
  Weight: 34.01 kg

DRUGS (1)
  1. ALLEGRA ALLERGY [Suspect]
     Active Substance: FEXOFENADINE HYDROCHLORIDE
     Indication: HYPERSENSITIVITY
     Route: 048
     Dates: start: 20171005, end: 20171005

REACTIONS (2)
  - Drug ineffective [Unknown]
  - Product use issue [Unknown]
